FAERS Safety Report 21896601 (Version 1)
Quarter: 2023Q1

REPORT INFORMATION
  Report Type: Spontaneous
  Country: US (occurrence: None)
  Receive Date: 20230120
  Receipt Date: 20230120
  Transmission Date: 20230417
  Serious: Yes (Hospitalization)
  Sender: FDA-Public Use
  Company Number: None

PATIENT
  Age: 66 Year
  Sex: Female
  Weight: 77.5 kg

DRUGS (2)
  1. IPILIMUMAB [Suspect]
     Active Substance: IPILIMUMAB
     Indication: Glioblastoma multiforme
     Dosage: FREQUENCY : EVERY 3 WEEKS?
     Route: 042
     Dates: start: 20190114, end: 20190318
  2. NIVOLUMAB [Suspect]
     Active Substance: NIVOLUMAB
     Indication: Glioblastoma multiforme
     Dosage: Q 3WKS THEN 2 ...?
     Route: 042
     Dates: start: 20190114, end: 20190422

REACTIONS (3)
  - Muscular weakness [None]
  - Urinary tract infection [None]
  - Confusional state [None]

NARRATIVE: CASE EVENT DATE: 20190501
